FAERS Safety Report 9646287 (Version 2)
Quarter: 2014Q1

REPORT INFORMATION
  Report Type: Spontaneous
  Country: DE (occurrence: None)
  Receive Date: 20131024
  Receipt Date: 20140324
  Transmission Date: 20141002
  Serious: Yes (Hospitalization, Other)
  Sender: FDA-Public Use
  Company Number: AUR-APL-2013-08915

PATIENT
  Age: 50 Year
  Sex: Male
  Weight: 93 kg

DRUGS (13)
  1. LAMOTRIGINE [Suspect]
     Indication: PRODUCT USED FOR UNKNOWN INDICATION
     Dates: end: 201309
  2. LYRICA [Suspect]
     Indication: FIBROMYALGIA
     Dosage: 100 MG (50 MG, 2 IN 1 D)
     Dates: start: 20130117, end: 201304
  3. AMIODARONE (AMIODARONE) [Concomitant]
  4. PRADAXA (DABIGATRAN ETEXILATE MESILATE) [Concomitant]
  5. PULMICORT (BUDESONIDE) [Concomitant]
  6. BERODUAL (DUOVENT) [Concomitant]
  7. MIRTAZAPINE MIRTAZAPINE) [Concomitant]
  8. QUENSYL (HYDROXYCHLOROQUINE SULFATE) [Concomitant]
  9. PANTOPRAZOLE (PANTOPRAZOLE SODIUM SESQUIHYDRATE) [Concomitant]
  10. TRAMADOL (TRAMADOL) [Concomitant]
  11. ZOPLICONE (ZOPLICOE) [Concomitant]
  12. PREDNISOLONE (PREDNISOLONE) [Concomitant]
  13. NOVALGIN (NOVO-PETRIN) [Concomitant]

REACTIONS (22)
  - Rhabdomyolysis [None]
  - Atrial flutter [None]
  - Atrial fibrillation [None]
  - Cardiac tamponade [None]
  - Fibromyalgia [None]
  - Lymphadenopathy [None]
  - Diverticulum [None]
  - Pulmonary embolism [None]
  - Depression [None]
  - Hypersensitivity [None]
  - Aspergillus infection [None]
  - Intracardiac thrombus [None]
  - Bundle branch block right [None]
  - Anxiety [None]
  - Fear of death [None]
  - Disease recurrence [None]
  - Asthma [None]
  - Drug ineffective [None]
  - Left ventricular dysfunction [None]
  - Tricuspid valve incompetence [None]
  - Pericardial effusion [None]
  - Blood pressure increased [None]
